FAERS Safety Report 17267676 (Version 3)
Quarter: 2020Q2

REPORT INFORMATION
  Report Type: Spontaneous
  Country: US (occurrence: US)
  Receive Date: 20200114
  Receipt Date: 20200423
  Transmission Date: 20200713
  Serious: No
  Sender: FDA-Public Use
  Company Number: US-PFIZER INC-2020016486

PATIENT
  Age: 64 Year
  Sex: Female
  Weight: 55.79 kg

DRUGS (2)
  1. XELJANZ [Suspect]
     Active Substance: TOFACITINIB CITRATE
     Indication: ARTHRITIS
  2. XELJANZ [Suspect]
     Active Substance: TOFACITINIB CITRATE
     Indication: ARTHRALGIA
     Dosage: 5 MG, 2X/DAY
     Route: 048

REACTIONS (6)
  - Malaise [Unknown]
  - Off label use [Unknown]
  - Gait inability [Unknown]
  - Pain [Unknown]
  - Product use in unapproved indication [Unknown]
  - Alopecia [Not Recovered/Not Resolved]
